FAERS Safety Report 8516276-5 (Version None)
Quarter: 2012Q3

REPORT INFORMATION
  Report Type: 
  Country: None (occurrence: None)
  Receive Date: 20120717
  Receipt Date: 20120702
  Transmission Date: 20120928
  Serious: Yes (Hospitalization)
  Sender: FDA-Public Use
  Company Number: JP-MSD-1207JPN001145

PATIENT

DRUGS (17)
  1. TELAVIC [Suspect]
     Dosage: 1500 MG, QD
     Route: 048
     Dates: start: 20120411, end: 20120416
  2. LISINOPRIL [Concomitant]
     Indication: HYPERTENSION
     Dosage: 10 MG, QD
     Route: 048
     Dates: end: 20120507
  3. PEGINTERFERON ALFA-2B [Suspect]
     Dosage: 80 MICROGRAM, QW
     Route: 058
     Dates: start: 20120409, end: 20120424
  4. RIBAVIRIN [Suspect]
     Dosage: 200 MG, QW
     Route: 048
     Dates: start: 20120508, end: 20120521
  5. TELAVIC [Suspect]
     Dosage: 1500 MG, QD
     Route: 048
     Dates: start: 20120529, end: 20120604
  6. TELAVIC [Suspect]
     Indication: HEPATITIS C
     Dosage: 2250 MG, QD
     Route: 048
     Dates: start: 20120316, end: 20120404
  7. TELAVIC [Suspect]
     Dosage: 2250 MG, QD
     Route: 048
     Dates: start: 20120416, end: 20120528
  8. PEGINTERFERON ALFA-2B [Suspect]
     Dosage: 80 MICROGRAM, QW
     Route: 058
     Dates: start: 20120330, end: 20120330
  9. PEGINTERFERON ALFA-2B [Suspect]
     Dosage: 40 MICROGRAM, QW
     Route: 058
     Dates: start: 20120501, end: 20120529
  10. PNEUMOVAX 23 [Suspect]
     Route: 051
  11. AMLODIPINE [Concomitant]
     Dosage: 2.5 MG, UNK
     Route: 048
     Dates: start: 20120606
  12. RIBAVIRIN [Suspect]
     Indication: HEPATITIS C
     Dosage: 800 MG, QD
     Route: 048
     Dates: start: 20120316, end: 20120404
  13. RIBAVIRIN [Suspect]
     Dosage: 600 MG, QD
     Route: 048
     Dates: start: 20120409, end: 20120501
  14. RIBAVIRIN [Suspect]
     Dosage: 400 MG, QW
     Route: 048
     Dates: start: 20120501, end: 20120508
  15. AMLODIPINE [Concomitant]
     Indication: HYPERTENSION
     Dosage: 5 MG, QD
     Route: 048
     Dates: start: 20120508, end: 20120605
  16. RIBAVIRIN [Suspect]
     Dosage: 200 MG, QW
     Route: 048
     Dates: start: 20120601, end: 20120603
  17. PEGINTERFERON ALFA-2B [Suspect]
     Indication: HEPATITIS C
     Dosage: 100 MICROGRAM, QW
     Route: 058
     Dates: start: 20120316, end: 20120323

REACTIONS (2)
  - HAEMOGLOBIN DECREASED [None]
  - ERYTHEMA [None]
